FAERS Safety Report 5395940-3 (Version None)
Quarter: 2007Q3

REPORT INFORMATION
  Report Type: 
  Country: None (occurrence: None)
  Receive Date: 20070724
  Receipt Date: 20070713
  Transmission Date: 20080115
  Serious: Yes (Death)
  Sender: FDA-Public Use
  Company Number: AR-PFIZER INC-2007057624

PATIENT
  Sex: Male

DRUGS (4)
  1. SPIRONOLACTONE [Suspect]
     Indication: CARDIAC FAILURE
     Route: 048
     Dates: start: 20050801, end: 20070613
  2. AMIODARONE HCL [Concomitant]
     Route: 048
  3. LASIX [Concomitant]
     Route: 048
  4. VALIUM [Concomitant]
     Route: 048

REACTIONS (5)
  - ANOREXIA [None]
  - CHEST PAIN [None]
  - COUGH [None]
  - PAIN IN EXTREMITY [None]
  - SUDDEN DEATH [None]
